FAERS Safety Report 12708681 (Version 1)
Quarter: 2016Q3

REPORT INFORMATION
  Report Type: Spontaneous
  Country: US (occurrence: US)
  Receive Date: 20160901
  Receipt Date: 20160901
  Transmission Date: 20161109
  Serious: Yes (Other)
  Sender: FDA-Public Use
  Company Number: US-PFIZER INC-2016405458

PATIENT
  Age: 33 Year
  Sex: Female

DRUGS (1)
  1. EPINEPHRINE. [Suspect]
     Active Substance: EPINEPHRINE
     Indication: ANAPHYLACTIC REACTION
     Dosage: 0.3 MG, UNK, (1:1000)
     Route: 042

REACTIONS (4)
  - Electrocardiogram ST segment elevation [Unknown]
  - Coronary artery dissection [Recovered/Resolved]
  - Chest pain [Unknown]
  - Incorrect route of drug administration [Unknown]
